FAERS Safety Report 12082971 (Version 18)
Quarter: 2017Q3

REPORT INFORMATION
  Report Type: Spontaneous
  Country: US (occurrence: US)
  Receive Date: 20160217
  Receipt Date: 20170823
  Transmission Date: 20171127
  Serious: Yes (Other)
  Sender: FDA-Public Use
  Company Number: US-PFIZER INC-2016082348

PATIENT
  Age: 81 Year
  Sex: Female
  Weight: 27.21 kg

DRUGS (12)
  1. IBRANCE [Suspect]
     Active Substance: PALBOCICLIB
     Indication: BREAST CANCER METASTATIC
     Dosage: 125 MG, CYCLIC (1 DAILY FOR 21 DAYS, THEN 7 OFF)
     Route: 048
     Dates: start: 20160126
  2. IBRANCE [Suspect]
     Active Substance: PALBOCICLIB
     Dosage: 125 MG, CYCLIC (1 DAILY FOR 21 DAYS, THEN 7 OFF)
     Route: 048
  3. IBRANCE [Suspect]
     Active Substance: PALBOCICLIB
     Dosage: 125 MG, CYCLIC (DAYS1-21 Q28 DAYS)
     Route: 048
  4. IBRANCE [Suspect]
     Active Substance: PALBOCICLIB
     Dosage: 125 MG, CYCLIC(DAYS 1-21 Q28 DAYS)
     Route: 048
  5. IBRANCE [Suspect]
     Active Substance: PALBOCICLIB
     Dosage: 125 MG, CYCLIC (1 DAILY FOR 21 DAYS, THEN 7 OFF)
     Route: 048
  6. IBRANCE [Suspect]
     Active Substance: PALBOCICLIB
     Dosage: 125 MG, CYCLIC(DAYS 1-21 Q28 DAYS)
     Route: 048
  7. IBRANCE [Suspect]
     Active Substance: PALBOCICLIB
     Dosage: 125 MG, CYCLIC (1 DAILY FOR 21 DAYS, THEN 7 OFF)
     Route: 048
  8. IBRANCE [Suspect]
     Active Substance: PALBOCICLIB
     Dosage: 125 MG, CYCLIC (1 DAILY FOR 21 DAYS, THEN 7 OFF)
     Route: 048
  9. IBRANCE [Suspect]
     Active Substance: PALBOCICLIB
     Dosage: 125 MG, CYCLIC (DAYS1-21 Q28 DAYS)
     Route: 048
  10. IBRANCE [Suspect]
     Active Substance: PALBOCICLIB
     Dosage: 125 MG, CYCLIC (DAYS1-21 Q28 DAYS)
     Route: 048
  11. IBRANCE [Suspect]
     Active Substance: PALBOCICLIB
     Dosage: 125 MG, CYCLIC(DAYS 1-21 Q28 DAYS)
     Route: 048
     Dates: start: 20160126, end: 201705
  12. IBRANCE [Suspect]
     Active Substance: PALBOCICLIB
     Dosage: 125 MG, CYCLIC(DAYS 1-21 Q28 DAYS)
     Route: 048

REACTIONS (38)
  - Macular degeneration [Unknown]
  - Dehydration [Unknown]
  - Dyspnoea [Unknown]
  - Hot flush [Unknown]
  - Rash [Recovered/Resolved]
  - Depression [Unknown]
  - Drug dose omission [Unknown]
  - Dysuria [Unknown]
  - Eructation [Unknown]
  - Abdominal discomfort [Unknown]
  - Blister [Recovered/Resolved]
  - Rhinorrhoea [Unknown]
  - Abdominal distension [Unknown]
  - Dysphonia [Unknown]
  - Gastrooesophageal reflux disease [Recovering/Resolving]
  - Pruritus generalised [Unknown]
  - Visual acuity reduced [Unknown]
  - White blood cell count decreased [Unknown]
  - Cough [Unknown]
  - Haemoglobin decreased [Unknown]
  - Nasal polyps [Unknown]
  - Neoplasm progression [Unknown]
  - Discomfort [Unknown]
  - Dizziness [Recovered/Resolved]
  - Petechiae [Unknown]
  - Erythema [Recovered/Resolved]
  - Memory impairment [Unknown]
  - Asthenia [Unknown]
  - Inappropriate schedule of drug administration [Unknown]
  - Fatigue [Unknown]
  - Alopecia [Unknown]
  - Apathy [Unknown]
  - Platelet count decreased [Unknown]
  - Malaise [Unknown]
  - Constipation [Not Recovered/Not Resolved]
  - Hirsutism [Unknown]
  - Stomatitis [Unknown]
  - Herpes zoster [Recovered/Resolved]

NARRATIVE: CASE EVENT DATE: 20160209
